FAERS Safety Report 5196034-2 (Version None)
Quarter: 2006Q4

REPORT INFORMATION
  Report Type: 
  Country: None (occurrence: None)
  Receive Date: 20061212
  Receipt Date: 20061212
  Transmission Date: 20070319
  Serious: Yes (Other)
  Sender: FDA-Public Use
  Company Number: 105202

PATIENT
  Age: 24 Year
  Sex: Female

DRUGS (1)
  1. DAIVOBET [Suspect]
     Indication: PSORIASIS
     Dosage: TO
     Route: 061
     Dates: start: 20060210, end: 20060303

REACTIONS (3)
  - ABORTION INDUCED [None]
  - DRUG EXPOSURE DURING PREGNANCY [None]
  - SKULL MALFORMATION [None]
